FAERS Safety Report 19499602 (Version 2)
Quarter: 2021Q3

REPORT INFORMATION
  Report Type: Report from Study
  Country: None (occurrence: FI)
  Receive Date: 20210707
  Receipt Date: 20210713
  Transmission Date: 20211014
  Serious: Yes (Hospitalization)
  Sender: FDA-Public Use
  Company Number: FI-ABBVIE-21K-055-3976333-00

PATIENT
  Age: 72 Year
  Sex: Male

DRUGS (12)
  1. DIVISUN [Concomitant]
     Active Substance: CHOLECALCIFEROL
     Indication: VITAMIN SUPPLEMENTATION
     Route: 048
  2. DUODOPA [Suspect]
     Active Substance: CARBIDOPA\LEVODOPA
     Indication: PARKINSON^S DISEASE
     Route: 050
     Dates: start: 20200529
  3. DUODOPA [Suspect]
     Active Substance: CARBIDOPA\LEVODOPA
  4. TRIOBE [Concomitant]
     Indication: VITAMIN SUPPLEMENTATION
  5. PANADOL FORTE [Concomitant]
     Indication: PAIN
     Dates: start: 20210604
  6. BETMIGA [Concomitant]
     Active Substance: MIRABEGRON
     Indication: URINARY TRACT DISORDER
  7. THYROXIN [Concomitant]
     Active Substance: LEVOTHYROXINE
     Indication: THYROID DISORDER
  8. LEVOLAC [Concomitant]
     Active Substance: LACTULOSE
     Indication: CONSTIPATION
  9. KETIPINOR [Concomitant]
     Active Substance: QUETIAPINE FUMARATE
     Indication: INSOMNIA
  10. TARGINIQ ER [Concomitant]
     Active Substance: NALOXONE HYDROCHLORIDE\OXYCODONE HYDROCHLORIDE
     Indication: PAIN MANAGEMENT
     Dosage: DOSE NOT KNOWN, STRENGTH 5/2.5 MG
     Dates: start: 20210603, end: 20210616
  11. FLORINEF ACETATE [Concomitant]
     Active Substance: FLUDROCORTISONE ACETATE
     Indication: DIZZINESS
     Dates: start: 20210623
  12. KETIPINOR [Concomitant]
     Active Substance: QUETIAPINE FUMARATE
     Indication: CONFUSIONAL STATE
     Dosage: 1 +2 TABLETS DAILY

REACTIONS (11)
  - Loss of personal independence in daily activities [Recovered/Resolved]
  - Device issue [Unknown]
  - Device dislocation [Recovered/Resolved]
  - Parkinsonian gait [Unknown]
  - Back injury [Unknown]
  - General physical health deterioration [Unknown]
  - Device physical property issue [Unknown]
  - Confusional state [Recovered/Resolved]
  - Off label use [Recovered/Resolved]
  - Back pain [Unknown]
  - Fall [Unknown]

NARRATIVE: CASE EVENT DATE: 2021
